FAERS Safety Report 5913588-6 (Version None)
Quarter: 2008Q4

REPORT INFORMATION
  Report Type: 
  Country: None (occurrence: None)
  Receive Date: 20081009
  Receipt Date: 20081003
  Transmission Date: 20090506
  Serious: Yes (Death, Hospitalization)
  Sender: FDA-Public Use
  Company Number: CA-WYE-H06255208

PATIENT
  Age: 59 Year
  Sex: Female
  Weight: 88 kg

DRUGS (3)
  1. GEMTUZUMAB OZOGAMICIN [Suspect]
     Indication: ACUTE MYELOID LEUKAEMIA
     Dosage: 11.22 MG TOTAL DOSE ADMINISTERED THIS COURSE
     Route: 065
     Dates: start: 20080917, end: 20080920
  2. DAUNOMYCIN [Suspect]
     Indication: ACUTE MYELOID LEUKAEMIA
     Dosage: 84.15 MG TOTAL DOSE ADMINISTERED THIS COURSE
     Route: 065
     Dates: start: 20080917, end: 20080919
  3. CYTARABINE [Suspect]
     Indication: ACUTE MYELOID LEUKAEMIA
     Dosage: 187 MG TOTAL DOSE ADMINISTERED THIS COURSE
     Route: 065
     Dates: start: 20080917, end: 20080923

REACTIONS (1)
  - PULMONARY HAEMORRHAGE [None]
